FAERS Safety Report 7610709-4 (Version None)
Quarter: 2011Q3

REPORT INFORMATION
  Report Type: 
  Country: None (occurrence: None)
  Receive Date: 20110715
  Receipt Date: 20110711
  Transmission Date: 20111222
  Serious: Yes (Other)
  Sender: FDA-Public Use
  Company Number: US-PFIZER INC-2011156447

PATIENT
  Sex: Female

DRUGS (1)
  1. SUTENT [Suspect]
     Indication: RENAL CANCER
     Dosage: UNK
     Route: 048

REACTIONS (5)
  - GINGIVAL BLEEDING [None]
  - LYMPHADENOPATHY [None]
  - DIARRHOEA [None]
  - VOMITING [None]
  - FUNGAL INFECTION [None]
